FAERS Safety Report 12472216 (Version 1)
Quarter: 2016Q2

REPORT INFORMATION
  Report Type: Spontaneous
  Country: CH (occurrence: CH)
  Receive Date: 20160616
  Receipt Date: 20160616
  Transmission Date: 20160815
  Serious: Yes (Hospitalization)
  Sender: FDA-Public Use
  Company Number: CH-JNJFOC-20160611661

PATIENT
  Age: 82 Year
  Sex: Male
  Weight: 90 kg

DRUGS (11)
  1. LEVEMIR [Concomitant]
     Active Substance: INSULIN DETEMIR
     Route: 065
  2. DAFALGAN [Concomitant]
     Active Substance: ACETAMINOPHEN
     Route: 065
  3. XARELTO [Suspect]
     Active Substance: RIVAROXABAN
     Indication: PRODUCT USED FOR UNKNOWN INDICATION
     Route: 048
     Dates: start: 201409, end: 20160510
  4. ATORVASTATIN CALCIUM. [Suspect]
     Active Substance: ATORVASTATIN CALCIUM
     Indication: PRODUCT USED FOR UNKNOWN INDICATION
     Route: 065
  5. CONCOR [Concomitant]
     Active Substance: BISOPROLOL FUMARATE
     Route: 065
  6. ROCALTROL [Concomitant]
     Active Substance: CALCITRIOL
     Route: 065
     Dates: end: 20160510
  7. AMLODIPINE BESILATE W/OLMESARTAN MEDOXOMIL [Concomitant]
     Route: 065
     Dates: end: 20160510
  8. ALLOPURINOL. [Concomitant]
     Active Substance: ALLOPURINOL
     Route: 065
     Dates: end: 20160510
  9. ALDACTONE [Concomitant]
     Active Substance: SPIRONOLACTONE
     Route: 065
     Dates: end: 20160510
  10. TOREM [Concomitant]
     Active Substance: TORSEMIDE
     Route: 065
     Dates: end: 20160510
  11. JANUVIA [Concomitant]
     Active Substance: SITAGLIPTIN PHOSPHATE
     Route: 065
     Dates: end: 20160510

REACTIONS (4)
  - Acute kidney injury [Recovered/Resolved]
  - Potentiating drug interaction [Recovered/Resolved]
  - Iron deficiency anaemia [Recovering/Resolving]
  - Upper gastrointestinal haemorrhage [Recovered/Resolved]

NARRATIVE: CASE EVENT DATE: 201602
